FAERS Safety Report 6274420-7 (Version None)
Quarter: 2009Q3

REPORT INFORMATION
  Report Type: 
  Country: None (occurrence: None)
  Receive Date: 20090720
  Receipt Date: 20090710
  Transmission Date: 20100115
  Serious: Yes (Death, Other)
  Sender: FDA-Public Use
  Company Number: NO-PFIZER INC-2008089804

PATIENT
  Age: 69 Year

DRUGS (8)
  1. LIPITOR [Suspect]
     Indication: HYPERCHOLESTEROLAEMIA
     Dosage: 40 MG, 1X/DAY
     Route: 048
     Dates: start: 19990317, end: 20080603
  2. EZETROL [Suspect]
     Indication: HYPERCHOLESTEROLAEMIA
     Dosage: 10 MG, 1X/DAY
     Route: 048
     Dates: start: 20071205, end: 20080603
  3. EZETROL [Suspect]
     Route: 048
     Dates: start: 20071215, end: 20080603
  4. TURMERIC [Interacting]
     Indication: MUSCULOSKELETAL STIFFNESS
     Dosage: ONE TO TWO TIMES A WEEK, OCCASIONALLY
     Route: 048
     Dates: start: 20071215, end: 20080401
  5. NEXIUM [Concomitant]
     Indication: DYSPEPSIA
     Dosage: 20 MG, 1X/DAY
     Route: 048
     Dates: start: 20080530, end: 20080803
  6. NEXIUM [Concomitant]
     Dates: start: 20080530
  7. NEXIUM [Concomitant]
     Route: 048
  8. IRBESARTAN [Concomitant]
     Indication: HYPERTENSION
     Dosage: 150 MG, 1X/DAY
     Route: 048
     Dates: start: 20030527, end: 20080603

REACTIONS (14)
  - ACUTE HEPATIC FAILURE [None]
  - CHROMATURIA [None]
  - DEATH [None]
  - ENCEPHALOPATHY [None]
  - GASTROINTESTINAL PAIN [None]
  - HAEMORRHAGIC DIATHESIS [None]
  - HEPATIC NECROSIS [None]
  - HEPATORENAL SYNDROME [None]
  - HYPERBILIRUBINAEMIA [None]
  - IMMUNE SYSTEM DISORDER [None]
  - INFECTION [None]
  - JAUNDICE [None]
  - MULTI-ORGAN FAILURE [None]
  - NAUSEA [None]
